APPROVED DRUG PRODUCT: DEFERASIROX
Active Ingredient: DEFERASIROX
Strength: 125MG
Dosage Form/Route: TABLET, FOR SUSPENSION;ORAL
Application: A209426 | Product #001
Applicant: TORRENT PHARMACEUTICALS LTD
Approved: Nov 5, 2024 | RLD: No | RS: No | Type: DISCN